FAERS Safety Report 7706949-6 (Version None)
Quarter: 2011Q3

REPORT INFORMATION
  Report Type: 
  Country: None (occurrence: None)
  Receive Date: 20110824
  Receipt Date: 20110817
  Transmission Date: 20111222
  Serious: Yes (Other)
  Sender: FDA-Public Use
  Company Number: DE-GLAXOSMITHKLINE-D0072436A

PATIENT
  Sex: Female

DRUGS (3)
  1. LAMOTRIGINE [Concomitant]
     Indication: EPILEPSY
     Dosage: 300MG PER DAY
     Route: 065
     Dates: start: 19990101
  2. VALPROIC ACID [Concomitant]
     Indication: EPILEPSY
     Dosage: 1800MG PER DAY
     Route: 065
  3. TROBALT [Suspect]
     Indication: EPILEPSY
     Route: 065
     Dates: start: 20110627

REACTIONS (4)
  - DIZZINESS [None]
  - DISTURBANCE IN ATTENTION [None]
  - FATIGUE [None]
  - APHASIA [None]
